FAERS Safety Report 24734703 (Version 1)
Quarter: 2024Q4

REPORT INFORMATION
  Report Type: Other
  Country: US (occurrence: ES)
  Receive Date: 20241214
  Receipt Date: 20241214
  Transmission Date: 20250114
  Serious: Yes (Hospitalization)
  Sender: B BRAUN
  Company Number: ES-B.Braun Medical Inc.-2167074

PATIENT
  Age: 97 Year
  Sex: Female

DRUGS (3)
  1. ACETAMINOPHEN [Suspect]
     Active Substance: ACETAMINOPHEN
     Indication: Pain
  2. FENTANYL [Suspect]
     Active Substance: FENTANYL
  3. DIPYRONE [Suspect]
     Active Substance: DIPYRONE

REACTIONS (1)
  - Drug ineffective [Unknown]
